FAERS Safety Report 16615746 (Version 1)
Quarter: 2019Q3

REPORT INFORMATION
  Report Type: Spontaneous
  Country: US (occurrence: US)
  Receive Date: 20190723
  Receipt Date: 20190723
  Transmission Date: 20191004
  Serious: Yes (Other)
  Sender: FDA-Public Use
  Company Number: US-ABBVIE-19P-163-2786353-00

PATIENT
  Age: 20 Year
  Sex: Female
  Weight: 131.21 kg

DRUGS (8)
  1. LATUDA [Concomitant]
     Active Substance: LURASIDONE HYDROCHLORIDE
     Indication: DEPRESSION
  2. VENLAFAXINE [Concomitant]
     Active Substance: VENLAFAXINE HYDROCHLORIDE
     Indication: DEPRESSION
  3. ORILISSA [Suspect]
     Active Substance: ELAGOLIX SODIUM
     Route: 048
     Dates: start: 20190507, end: 20190509
  4. PROBIOTIC [Concomitant]
     Active Substance: PROBIOTICS NOS
     Indication: PROBIOTIC THERAPY
  5. ORILISSA [Suspect]
     Active Substance: ELAGOLIX SODIUM
     Route: 048
     Dates: start: 20190510, end: 20190514
  6. ORILISSA [Suspect]
     Active Substance: ELAGOLIX SODIUM
     Indication: ENDOMETRIOSIS
     Route: 048
     Dates: start: 201904, end: 20190506
  7. IRON [Concomitant]
     Active Substance: IRON
     Indication: IRON DEFICIENCY
  8. VITAMIN D2 [Concomitant]
     Active Substance: ERGOCALCIFEROL
     Indication: VITAMIN SUPPLEMENTATION

REACTIONS (2)
  - Suicidal ideation [Recovered/Resolved]
  - Tension headache [Recovered/Resolved]

NARRATIVE: CASE EVENT DATE: 201904
